FAERS Safety Report 9036318 (Version 1)
Quarter: 2013Q1

REPORT INFORMATION
  Report Type: Spontaneous
  Country: US (occurrence: None)
  Receive Date: 20130123
  Receipt Date: 20130123
  Transmission Date: 20140127
  Serious: Yes (Hospitalization)
  Sender: FDA-Public Use
  Company Number: None

PATIENT
  Age: 49 Year
  Sex: Female
  Weight: 81.65 kg

DRUGS (1)
  1. MULTIHANCE [Suspect]
     Indication: BIOPSY BREAST
     Dosage: 17CC IV BOLUS
     Route: 040

REACTIONS (4)
  - Convulsion [None]
  - Apnoea [None]
  - Urinary incontinence [None]
  - Confusional state [None]
